FAERS Safety Report 5079009-3 (Version None)
Quarter: 2006Q3

REPORT INFORMATION
  Report Type: 
  Country: None (occurrence: None)
  Receive Date: 20060809
  Receipt Date: 20060731
  Transmission Date: 20061208
  Serious: Yes (Other)
  Sender: FDA-Public Use
  Company Number: 2006093727

PATIENT
  Age: 70 Year
  Sex: Female
  Weight: 63.5036 kg

DRUGS (7)
  1. LYRICA [Suspect]
     Indication: NEURALGIA
     Dosage: 100 MG (50 MG, 2 IN 1 D)
     Dates: start: 20060401, end: 20060601
  2. ZYRTEC [Suspect]
     Indication: PRURITUS
     Dosage: 10 MG (10 MG, 1 IN D)
     Dates: start: 20060101, end: 20060101
  3. ZYRTEC [Suspect]
     Indication: RASH
     Dosage: 10 MG (10 MG, 1 IN D)
     Dates: start: 20060101, end: 20060101
  4. CORTICOSTEROIDS, DERMATOLOGICAL PREPARATIONS (CORTICOSTEROIDS, DERMATO [Suspect]
     Indication: DRUG USE FOR UNKNOWN INDICATION
     Dates: start: 20060101
  5. ACTONEL [Concomitant]
  6. FISH OIL (FISH OIL) [Concomitant]
  7. CALCIUM (CALCIUM) [Concomitant]

REACTIONS (6)
  - CONDITION AGGRAVATED [None]
  - CYST REMOVAL [None]
  - EYE DISCHARGE [None]
  - MULTIPLE ALLERGIES [None]
  - PAIN [None]
  - THERAPY NON-RESPONDER [None]
